FAERS Safety Report 10211309 (Version 2)
Quarter: 2014Q3

REPORT INFORMATION
  Report Type: Spontaneous
  Country: FR (occurrence: FR)
  Receive Date: 20140602
  Receipt Date: 20140711
  Transmission Date: 20150326
  Serious: Yes (Other)
  Sender: FDA-Public Use
  Company Number: FR-GLAXOSMITHKLINE-B0970951A

PATIENT
  Age: 22 Year
  Sex: Female
  Weight: 85 kg

DRUGS (5)
  1. URBANYL [Concomitant]
     Active Substance: CLOBAZAM
     Indication: EPILEPSY
     Dosage: 5MG THREE TIMES PER DAY
     Route: 048
     Dates: start: 2011
  2. VIMPAT [Concomitant]
     Active Substance: LACOSAMIDE
     Indication: EPILEPSY
     Route: 065
  3. EPITOMAX [Concomitant]
     Active Substance: TOPIRAMATE
     Indication: EPILEPSY
     Dosage: 160MG TWICE PER DAY
     Route: 048
     Dates: start: 2011
  4. TROBALT [Suspect]
     Active Substance: EZOGABINE
     Indication: EPILEPSY
     Route: 048
     Dates: start: 20130305, end: 201402
  5. LAMICTAL [Concomitant]
     Active Substance: LAMOTRIGINE
     Indication: EPILEPSY
     Dosage: 150MG PER DAY
     Route: 048
     Dates: start: 2011

REACTIONS (6)
  - Affective disorder [Recovered/Resolved]
  - Suicidal ideation [Recovered/Resolved]
  - Hallucination, auditory [Recovered/Resolved]
  - Crying [Recovered/Resolved]
  - Thinking abnormal [Recovered/Resolved]
  - Incorrect dose administered [Unknown]

NARRATIVE: CASE EVENT DATE: 20130305
